FAERS Safety Report 25440934 (Version 1)
Quarter: 2025Q2

REPORT INFORMATION
  Report Type: Spontaneous
  Country: US (occurrence: US)
  Receive Date: 20250616
  Receipt Date: 20250616
  Transmission Date: 20250717
  Serious: No
  Sender: MYLAN
  Company Number: US-MYLANLABS-2025M1047265

PATIENT
  Age: 85 Year
  Sex: Female

DRUGS (4)
  1. WIXELA INHUB [Suspect]
     Active Substance: FLUTICASONE PROPIONATE\SALMETEROL XINAFOATE
     Indication: Dyspnoea
     Dosage: 250 PER 50 MICROGRAM, BID (TWICE A DAY )
     Dates: start: 20250601
  2. WIXELA INHUB [Suspect]
     Active Substance: FLUTICASONE PROPIONATE\SALMETEROL XINAFOATE
     Dosage: 250 PER 50 MICROGRAM, BID (TWICE A DAY )
     Route: 065
     Dates: start: 20250601
  3. WIXELA INHUB [Suspect]
     Active Substance: FLUTICASONE PROPIONATE\SALMETEROL XINAFOATE
     Dosage: 250 PER 50 MICROGRAM, BID (TWICE A DAY )
     Route: 065
     Dates: start: 20250601
  4. WIXELA INHUB [Suspect]
     Active Substance: FLUTICASONE PROPIONATE\SALMETEROL XINAFOATE
     Dosage: 250 PER 50 MICROGRAM, BID (TWICE A DAY )
     Dates: start: 20250601

REACTIONS (2)
  - Off label use [Unknown]
  - Device malfunction [Unknown]

NARRATIVE: CASE EVENT DATE: 20250601
